FAERS Safety Report 22346287 (Version 1)
Quarter: 2023Q2

REPORT INFORMATION
  Report Type: Spontaneous
  Country: ID (occurrence: None)
  Receive Date: 20230519
  Receipt Date: 20230519
  Transmission Date: 20230722
  Serious: Yes (Other)
  Sender: FDA-Public Use
  Company Number: 2023A115236

PATIENT
  Age: 75 Year
  Sex: Female

DRUGS (4)
  1. OSIMERTINIB [Suspect]
     Active Substance: OSIMERTINIB
     Indication: Lung adenocarcinoma stage IV
     Route: 048
     Dates: start: 202204
  2. OSIMERTINIB [Suspect]
     Active Substance: OSIMERTINIB
     Indication: EGFR gene mutation
     Route: 048
     Dates: start: 202204
  3. OSIMERTINIB [Suspect]
     Active Substance: OSIMERTINIB
     Indication: Anaplastic lymphoma kinase gene mutation
     Route: 048
     Dates: start: 202204
  4. OSIMERTINIB [Suspect]
     Active Substance: OSIMERTINIB
     Indication: Neoplasm progression
     Route: 048
     Dates: start: 202204

REACTIONS (4)
  - Inappropriate antidiuretic hormone secretion [Unknown]
  - Fatigue [Unknown]
  - Cerebral atrophy [Unknown]
  - Cerebral small vessel ischaemic disease [Unknown]
